FAERS Safety Report 11787487 (Version 1)
Quarter: 2015Q4

REPORT INFORMATION
  Report Type: Report from Study
  Country: US (occurrence: US)
  Receive Date: 20151130
  Receipt Date: 20151130
  Transmission Date: 20160305
  Serious: Yes (Other)
  Sender: FDA-Public Use
  Company Number: US-GLAXOSMITHKLINE-US2015GSK170004

PATIENT

DRUGS (1)
  1. ABACAVIR SULFATE + LAMIVUDINE [Suspect]
     Active Substance: ABACAVIR SULFATE\LAMIVUDINE
     Indication: HIV INFECTION
     Dosage: UNK, U
     Route: 065

REACTIONS (4)
  - Drug resistance [Unknown]
  - Chronic kidney disease [Unknown]
  - Ill-defined disorder [Unknown]
  - Acidosis [Unknown]
